FAERS Safety Report 6160912-8 (Version None)
Quarter: 2009Q2

REPORT INFORMATION
  Report Type: 
  Country: None (occurrence: None)
  Receive Date: 20090417
  Receipt Date: 20090417
  Transmission Date: 20091009
  Serious: Yes (Other)
  Sender: FDA-Public Use
  Company Number: None

PATIENT
  Age: 68 Year
  Sex: Female
  Weight: 78 kg

DRUGS (7)
  1. LIDOCAINE [Suspect]
     Indication: LOCAL ANAESTHESIA
     Dosage: UNKNOWN
     Dates: start: 20090204, end: 20090204
  2. ALBUTEROL/ SALMETEROL [Concomitant]
  3. PANTOPRAZOLE SODIUM [Concomitant]
  4. TRIAMTERENE AND HYDROCHLOROTHIAZIDE [Concomitant]
  5. TENOLOL [Concomitant]
  6. HYDROCORODONE/ ACETAMINOPHEN [Concomitant]
  7. METRONIDAZOLE [Concomitant]

REACTIONS (1)
  - METHAEMOGLOBINAEMIA [None]
